FAERS Safety Report 6743666-3 (Version None)
Quarter: 2010Q2

REPORT INFORMATION
  Report Type: 
  Country: None (occurrence: None)
  Receive Date: 20100527
  Receipt Date: 20100521
  Transmission Date: 20101027
  Serious: Yes (Hospitalization)
  Sender: FDA-Public Use
  Company Number: US-RB-009333-10

PATIENT
  Age: 49 Year
  Sex: Male

DRUGS (1)
  1. SUBOXONE [Suspect]
     Indication: DRUG DEPENDENCE
     Dosage: VARIED DOSING
     Route: 060
     Dates: start: 20080101

REACTIONS (8)
  - ARTHRALGIA [None]
  - ARTHRITIS INFECTIVE [None]
  - DIARRHOEA [None]
  - INFECTION [None]
  - JOINT SWELLING [None]
  - PYREXIA [None]
  - THROAT IRRITATION [None]
  - VOMITING [None]
